FAERS Safety Report 6333266-1 (Version None)
Quarter: 2009Q3

REPORT INFORMATION
  Report Type: 
  Country: None (occurrence: None)
  Receive Date: 20090828
  Receipt Date: 20090427
  Transmission Date: 20100115
  Serious: Yes (Other)
  Sender: FDA-Public Use
  Company Number: BR-PFIZER INC-2009204891

PATIENT
  Age: 43 Year

DRUGS (6)
  1. SOLU-MEDROL [Suspect]
     Indication: SYSTEMIC LUPUS ERYTHEMATOSUS
     Dosage: UNK MG, UNK
     Route: 042
     Dates: start: 20030101
  2. SOLU-MEDROL [Suspect]
     Indication: PLATELET DISORDER
  3. HIDANTAL [Concomitant]
     Dosage: UNK
  4. SOMALGIN [Concomitant]
     Dosage: UNK
  5. ASCORBIC ACID [Concomitant]
     Dosage: UNK
  6. AMLODIPINE [Concomitant]
     Dosage: UNK

REACTIONS (1)
  - PLATELET COUNT DECREASED [None]
